FAERS Safety Report 9425622 (Version 3)
Quarter: 2013Q3

REPORT INFORMATION
  Report Type: Spontaneous
  Country: US (occurrence: US)
  Receive Date: 20130729
  Receipt Date: 20130917
  Transmission Date: 20140515
  Serious: No
  Sender: FDA-Public Use
  Company Number: US-009507513-1307USA014421

PATIENT
  Age: 23 Year
  Sex: Female
  Weight: 87.75 kg

DRUGS (3)
  1. NEXPLANON [Suspect]
     Indication: CONTRACEPTION
     Dosage: 68 MG ROD, 1 STANDARD PACKAGE OF PF APPLI OF 1
     Route: 059
     Dates: start: 20130620, end: 20130620
  2. NEXPLANON [Suspect]
     Dosage: 68 MG ROD, 1 STANDARD PACKAGE OF PF APPLI OF 1
     Route: 059
     Dates: start: 20130620, end: 20130620
  3. ZOLOFT [Concomitant]
     Dosage: UNK
     Dates: start: 20130607

REACTIONS (5)
  - Panic attack [Unknown]
  - Anxiety [Unknown]
  - Medication error [Unknown]
  - Device difficult to use [Recovered/Resolved]
  - Product quality issue [Unknown]
